FAERS Safety Report 25288438 (Version 1)
Quarter: 2025Q2

REPORT INFORMATION
  Report Type: Spontaneous
  Country: US (occurrence: US)
  Receive Date: 20250509
  Receipt Date: 20250509
  Transmission Date: 20250717
  Serious: No
  Sender: UCB
  Company Number: US-UCBSA-2024012122

PATIENT
  Age: 55 Year
  Sex: Male

DRUGS (1)
  1. CIMZIA [Suspect]
     Active Substance: CERTOLIZUMAB PEGOL
     Indication: Ankylosing spondylitis

REACTIONS (7)
  - Presyncope [Unknown]
  - Injection site pain [Unknown]
  - Injection site reaction [Unknown]
  - Flushing [Unknown]
  - Dizziness [Unknown]
  - Visual impairment [Unknown]
  - Hypoacusis [Unknown]

NARRATIVE: CASE EVENT DATE: 20240308
